FAERS Safety Report 7079287-5 (Version None)
Quarter: 2010Q4

REPORT INFORMATION
  Report Type: 
  Country: None (occurrence: None)
  Receive Date: 20101022
  Receipt Date: 20101019
  Transmission Date: 20110411
  Serious: Yes (Other)
  Sender: FDA-Public Use
  Company Number: 2010SP055820

PATIENT
  Age: 82 Year
  Sex: Female
  Weight: 77 kg

DRUGS (6)
  1. ORMIGREIN (ORMIGREIN 01755201/) [Suspect]
     Indication: MIGRAINE
     Dosage: BID;PO
     Route: 048
     Dates: start: 19950101
  2. VYTORIN [Concomitant]
  3. SOMALGIN /00002701/ [Concomitant]
  4. FRONTAL [Concomitant]
  5. ARADOIS [Concomitant]
  6. OS-CAL /00108001/ [Concomitant]

REACTIONS (2)
  - DRUG DEPENDENCE [None]
  - OVERDOSE [None]
